FAERS Safety Report 22709572 (Version 17)
Quarter: 2024Q2

REPORT INFORMATION
  Report Type: Report from Study
  Country: US (occurrence: US)
  Receive Date: 20230717
  Receipt Date: 20240607
  Transmission Date: 20240716
  Serious: Yes (Hospitalization, Other)
  Sender: FDA-Public Use
  Company Number: US-ACADIA PHARMACEUTICALS INC.-ACA-2023-TRF-002571

PATIENT
  Age: 8 Year
  Sex: Female

DRUGS (19)
  1. DAYBUE [Suspect]
     Active Substance: TROFINETIDE
     Indication: Rett syndrome
     Dosage: 40 MILLILITER, BID VIA G-TUBE
     Dates: start: 20230618
  2. DAYBUE [Suspect]
     Active Substance: TROFINETIDE
     Dosage: 10 MILLILITER, BID, VIA G-TUBE
  3. DAYBUE [Suspect]
     Active Substance: TROFINETIDE
     Dosage: LOW DOSE
  4. DAYBUE [Suspect]
     Active Substance: TROFINETIDE
     Dosage: 40 MILLILITER, BID VIA G-TUBE
  5. DAYBUE [Suspect]
     Active Substance: TROFINETIDE
     Dosage: 20 MILLILITER, 4 TIMES A DAY
  6. DAYBUE [Suspect]
     Active Substance: TROFINETIDE
     Dosage: 40 MILLILITER, BID VIA G-TUBE
  7. DAYBUE [Suspect]
     Active Substance: TROFINETIDE
     Dosage: 20 MILLILITER, QID VIA G-TUBE
     Dates: start: 202311
  8. DAYBUE [Suspect]
     Active Substance: TROFINETIDE
     Dosage: 10ML IN MORNING, 20ML AROUND 11 OR 12 AND THEN 10ML AT NIGHT
  9. DAYBUE [Suspect]
     Active Substance: TROFINETIDE
     Dosage: 20 MILLILITER, BID VIA G-TUBE
  10. DAYBUE [Suspect]
     Active Substance: TROFINETIDE
     Dosage: 40 MILLILITER, BID VIA G-TUBE
  11. DAYBUE [Suspect]
     Active Substance: TROFINETIDE
     Dosage: UNK
     Route: 065
     Dates: start: 20240406
  12. DAYBUE [Suspect]
     Active Substance: TROFINETIDE
     Dosage: 40 MILLILITER, BID
  13. EPIDIOLEX [Concomitant]
     Active Substance: CANNABIDIOL
  14. FLOVENT [Concomitant]
     Active Substance: FLUTICASONE PROPIONATE
  15. KEPPRA [Concomitant]
     Active Substance: LEVETIRACETAM
  16. LAMICTAL [Concomitant]
     Active Substance: LAMOTRIGINE
  17. MELATONIN [Concomitant]
     Active Substance: MELATONIN
  18. PREVACID [Concomitant]
     Active Substance: LANSOPRAZOLE
  19. VALPROIC ACID [Concomitant]
     Active Substance: VALPROIC ACID

REACTIONS (34)
  - Spinal operation [Not Recovered/Not Resolved]
  - Seizure [Recovering/Resolving]
  - Seizure [Recovering/Resolving]
  - Abdominal discomfort [Not Recovered/Not Resolved]
  - Flatulence [Not Recovered/Not Resolved]
  - Feeling abnormal [Not Recovered/Not Resolved]
  - Nausea [Not Recovered/Not Resolved]
  - Underdose [Not Recovered/Not Resolved]
  - Chapped lips [Not Recovered/Not Resolved]
  - Drooling [Unknown]
  - Inappropriate schedule of product administration [Not Recovered/Not Resolved]
  - Constipation [Recovered/Resolved]
  - Gastric infection [Unknown]
  - Flatulence [Recovered/Resolved]
  - Inappropriate schedule of product administration [Unknown]
  - Somnolence [Recovered/Resolved]
  - Moaning [Unknown]
  - Crying [Recovered/Resolved]
  - Upper respiratory tract infection [Unknown]
  - Product dose omission issue [Recovered/Resolved]
  - Product dose omission issue [Recovered/Resolved]
  - Influenza [Recovered/Resolved]
  - Scoliosis [Not Recovered/Not Resolved]
  - Flat affect [Recovered/Resolved]
  - Product dose omission issue [Recovered/Resolved]
  - Pain [Recovered/Resolved]
  - Diarrhoea [Not Recovered/Not Resolved]
  - Diarrhoea [Not Recovered/Not Resolved]
  - Diarrhoea [Recovered/Resolved]
  - Diarrhoea [Unknown]
  - Diarrhoea [Unknown]
  - Vomiting [Unknown]
  - Nasopharyngitis [Recovered/Resolved]
  - Vomiting [Unknown]

NARRATIVE: CASE EVENT DATE: 20230618
